FAERS Safety Report 11246316 (Version 1)
Quarter: 2015Q3

REPORT INFORMATION
  Report Type: Report from Study
  Country: MX (occurrence: MX)
  Receive Date: 20150708
  Receipt Date: 20150708
  Transmission Date: 20151125
  Serious: Yes (Death, Hospitalization, Other)
  Sender: FDA-Public Use
  Company Number: MX-ROCHE-755845

PATIENT
  Age: 73 Year
  Sex: Male
  Weight: 73.2 kg

DRUGS (9)
  1. RITUXIMAB [Suspect]
     Active Substance: RITUXIMAB
     Indication: DIFFUSE LARGE B-CELL LYMPHOMA
     Dosage: DOSAGE FORM: 500 MG/50 ML, 100 MG/10 ML?DATE OF LAST DOSE PRIOR TO SAE: 13 AUG 2010
     Route: 042
  2. AMIODARONE [Concomitant]
     Active Substance: AMIODARONE
     Route: 065
     Dates: start: 20101209, end: 20110126
  3. DOXORUBICIN [Suspect]
     Active Substance: DOXORUBICIN
     Indication: DIFFUSE LARGE B-CELL LYMPHOMA
     Dosage: DOSAGE FORM: 50 MG, 10 MG?DATE OF LAST DOSE PRIOR TO SAE: 13 AUG 2010
     Route: 042
  4. CYCLOPHOSPHAMIDE. [Suspect]
     Active Substance: CYCLOPHOSPHAMIDE
     Indication: DIFFUSE LARGE B-CELL LYMPHOMA
     Dosage: DOSAGE FORM: 500 MG/50 ML?DATE OF LAST DOSE PRIOR TO SAE: 13 AUG 2010
     Route: 042
  5. PREDNISONE. [Suspect]
     Active Substance: PREDNISONE
     Indication: DIFFUSE LARGE B-CELL LYMPHOMA
     Dosage: DOSAGE FORM: 50 MG, 10 MG?DATE OF LAST DOSE PRIOR TO SAE: 13 AUG 2010
     Route: 048
  6. DIGOXIN. [Concomitant]
     Active Substance: DIGOXIN
     Route: 065
     Dates: start: 20101209, end: 20110126
  7. BEVACIZUMAB [Suspect]
     Active Substance: BEVACIZUMAB
     Indication: DIFFUSE LARGE B-CELL LYMPHOMA
     Dosage: DATE OF LAST DOSE PRIOR TO SAE: 13 AUGUST 2010
     Route: 042
  8. VINCRISTINE [Suspect]
     Active Substance: VINCRISTINE
     Indication: DIFFUSE LARGE B-CELL LYMPHOMA
     Dosage: DISAGE FORM: 1MG/2ML?DATE OF LAST DOSE PRIOR TO SAE: 13 AUG 2010
     Route: 042
  9. FRUSEMIDE [Concomitant]
     Active Substance: FUROSEMIDE
     Route: 065
     Dates: start: 20101209, end: 20110202

REACTIONS (2)
  - Cardiac failure congestive [Not Recovered/Not Resolved]
  - Atrioventricular block complete [Fatal]

NARRATIVE: CASE EVENT DATE: 20101209
